FAERS Safety Report 21977144 (Version 1)
Quarter: 2023Q1

REPORT INFORMATION
  Report Type: Spontaneous
  Country: US (occurrence: US)
  Receive Date: 20230210
  Receipt Date: 20230210
  Transmission Date: 20230417
  Serious: Yes (Other)
  Sender: FDA-Public Use
  Company Number: US-Axellia-004618

PATIENT
  Sex: Male

DRUGS (1)
  1. VANCOMYCIN [Suspect]
     Active Substance: VANCOMYCIN
     Indication: Clostridium difficile infection
     Dosage: ONCE DAILY

REACTIONS (3)
  - Clostridium difficile infection [Unknown]
  - Therapeutic product effect incomplete [Unknown]
  - Crohn^s disease [Unknown]
